FAERS Safety Report 8698979 (Version 3)
Quarter: 2012Q4

REPORT INFORMATION
  Report Type: Spontaneous
  Country: US (occurrence: None)
  Receive Date: 20120718
  Receipt Date: 20120822
  Transmission Date: 20130627
  Serious: Yes (Other)
  Sender: FDA-Public Use
  Company Number: 2012SA048260

PATIENT
  Age: 61 Year
  Sex: Female
  Weight: 81.65 kg

DRUGS (5)
  1. TROLAMINE SALICYLATE [Suspect]
     Indication: NECK PAIN
     Dosage: ;TOPICAL
     Route: 061
     Dates: start: 20120601, end: 20120629
  2. TROLAMINE SALICYLATE [Suspect]
     Indication: SHOULDER PAIN
     Dosage: ;TOPICAL
     Route: 061
     Dates: start: 20120601, end: 20120629
  3. MELOXICAM [Concomitant]
  4. CRESTOR [Concomitant]
  5. HYDROCODONE BITARTRATE [Concomitant]

REACTIONS (5)
  - Application site burn [None]
  - Application site scar [None]
  - Application site scab [None]
  - Application site infection [None]
  - Dermatitis contact [None]
